FAERS Safety Report 6957349-8 (Version None)
Quarter: 2010Q3

REPORT INFORMATION
  Report Type: 
  Country: None (occurrence: None)
  Receive Date: 20100831
  Receipt Date: 20100827
  Transmission Date: 20110219
  Serious: No
  Sender: FDA-Public Use
  Company Number: JP-BAYER-200914270BYL

PATIENT
  Age: 61 Year
  Sex: Male
  Weight: 76 kg

DRUGS (20)
  1. NEXAVAR [Suspect]
     Indication: RENAL CELL CARCINOMA
     Dosage: UNIT DOSE: 200 MG
     Route: 048
     Dates: start: 20090410, end: 20090523
  2. NEXAVAR [Suspect]
     Dosage: UNIT DOSE: 200 MG
     Route: 048
     Dates: start: 20090524, end: 20090616
  3. NEXAVAR [Suspect]
     Dosage: UNIT DOSE: 200 MG
     Route: 048
     Dates: start: 20090824, end: 20091001
  4. NEXAVAR [Suspect]
     Dosage: UNIT DOSE: 200 MG
     Route: 048
     Dates: start: 20090818, end: 20090823
  5. NORVASC [Suspect]
     Indication: HYPERTENSION
     Route: 048
     Dates: start: 20090426
  6. BLOPRESS [Concomitant]
     Route: 048
  7. ASPENON [Concomitant]
     Route: 048
  8. RINDERON [Concomitant]
     Route: 048
  9. FAMOTIDINE [Concomitant]
     Route: 048
  10. MAGMITT [Concomitant]
     Route: 048
  11. TULOBUTEROL [Concomitant]
     Route: 062
  12. SENNOSIDE [Concomitant]
     Route: 048
  13. LUDIOMIL [Concomitant]
     Route: 048
  14. RIVOTRIL [Concomitant]
     Route: 048
  15. CELECOX [Concomitant]
     Route: 048
  16. ARGAMATE [Concomitant]
     Route: 048
  17. AMITRIPTYLINE HCL [Concomitant]
     Route: 048
  18. HIRUDOID [Concomitant]
     Indication: PROPHYLAXIS
     Route: 061
     Dates: start: 20090411
  19. ALOSENN [Concomitant]
     Route: 048
  20. PASTARON [Concomitant]
     Indication: PROPHYLAXIS
     Route: 061
     Dates: start: 20090418

REACTIONS (5)
  - ERYTHEMA [None]
  - HYPERTENSION [None]
  - PALMAR-PLANTAR ERYTHRODYSAESTHESIA SYNDROME [None]
  - STOMATITIS [None]
  - TENDON RUPTURE [None]
